FAERS Safety Report 18861306 (Version 1)
Quarter: 2021Q1

REPORT INFORMATION
  Report Type: Spontaneous
  Country: NI (occurrence: NI)
  Receive Date: 20210208
  Receipt Date: 20210208
  Transmission Date: 20210420
  Serious: Yes (Other)
  Sender: FDA-Public Use
  Company Number: NI-US-PROVELL PHARMACEUTICALS LLC-9201409

PATIENT

DRUGS (1)
  1. EUTHYROX [Suspect]
     Active Substance: LEVOTHYROXINE SODIUM
     Indication: POST PROCEDURAL HYPOTHYROIDISM

REACTIONS (4)
  - Thyroid operation [Unknown]
  - Hypothyroidism [Unknown]
  - Cardiomegaly [Unknown]
  - Blood pressure increased [Unknown]
